FAERS Safety Report 7054056 (Version 28)
Quarter: 2015Q1

REPORT INFORMATION
  Report Type: Report from Study
  Country: CA (occurrence: CA)
  Receive Date: 20090717
  Receipt Date: 20150324
  Transmission Date: 20150721
  Serious: Yes (Other)
  Sender: FDA-Public Use
  Company Number: PHHY2009CA28681

PATIENT
  Age: 74 Year
  Sex: Female

DRUGS (3)
  1. SANDOSTATIN LAR DEPOT [Suspect]
     Active Substance: OCTREOTIDE ACETATE
     Dosage: 30 MG, EVERY FOUR WEEKS
     Route: 030
     Dates: end: 20070712
  2. SANDOSTATIN LAR DEPOT [Suspect]
     Active Substance: OCTREOTIDE ACETATE
     Dosage: 30 MG, QMO
     Route: 030
  3. SANDOSTATIN LAR DEPOT [Suspect]
     Active Substance: OCTREOTIDE ACETATE
     Indication: PANCREATIC NEUROENDOCRINE TUMOUR
     Dosage: 20 MG, UNK
     Route: 030
     Dates: start: 20070125

REACTIONS (18)
  - Hiatus hernia [Unknown]
  - Renal impairment [Unknown]
  - Alopecia [Unknown]
  - Diarrhoea [Unknown]
  - Blood pressure systolic increased [Unknown]
  - Metastasis [Unknown]
  - Skin plaque [Unknown]
  - Abdominal pain [Unknown]
  - Osteoarthritis [Unknown]
  - Rash [Unknown]
  - Abdominal pain upper [Unknown]
  - Malaise [Unknown]
  - Renal disorder [Unknown]
  - Erythema [Unknown]
  - Weight increased [Unknown]
  - Fluid retention [Unknown]
  - Arthralgia [Unknown]
  - Abdominal distension [Unknown]

NARRATIVE: CASE EVENT DATE: 20070125
